FAERS Safety Report 5991148-9 (Version None)
Quarter: 2008Q4

REPORT INFORMATION
  Report Type: 
  Country: None (occurrence: None)
  Receive Date: 20081209
  Receipt Date: 20081125
  Transmission Date: 20090506
  Serious: Yes (Other)
  Sender: FDA-Public Use
  Company Number: 034759

PATIENT
  Age: 19 Year
  Sex: Female

DRUGS (4)
  1. CLARAVIS [Suspect]
     Dosage: ORAL; 40 MG, BID, ORAL; 40 MG, BID, ORAL
     Route: 048
     Dates: start: 20080903, end: 20080910
  2. CLARAVIS [Suspect]
     Dosage: ORAL; 40 MG, BID, ORAL; 40 MG, BID, ORAL
     Route: 048
     Dates: start: 20080110
  3. CLARAVIS [Suspect]
     Dosage: ORAL; 40 MG, BID, ORAL; 40 MG, BID, ORAL
     Route: 048
     Dates: start: 20080208
  4. SOTRET [Suspect]
     Dosage: 40 MG, BID, ORAL
     Route: 048
     Dates: start: 20080531

REACTIONS (2)
  - TREATMENT NONCOMPLIANCE [None]
  - UNINTENDED PREGNANCY [None]
